FAERS Safety Report 25845882 (Version 1)
Quarter: 2025Q3

REPORT INFORMATION
  Report Type: Spontaneous
  Country: US (occurrence: US)
  Receive Date: 20250925
  Receipt Date: 20250925
  Transmission Date: 20251020
  Serious: Yes (Other)
  Sender: RANBAXY
  Company Number: US-SUN PHARMACEUTICAL INDUSTRIES LTD-2025R1-527684

PATIENT
  Age: 52 Year
  Sex: Female

DRUGS (2)
  1. LAMOTRIGINE [Suspect]
     Active Substance: LAMOTRIGINE
     Indication: Epilepsy
     Dosage: 300 MILLIGRAM, BID
     Route: 065
  2. BRIVARACETAM [Concomitant]
     Active Substance: BRIVARACETAM
     Indication: Epilepsy
     Route: 065

REACTIONS (8)
  - Toxicity to various agents [Unknown]
  - Vestibular migraine [Unknown]
  - Seizure [Unknown]
  - Encephalopathy [Unknown]
  - Ataxia [Unknown]
  - Gaze palsy [Unknown]
  - Nausea [Unknown]
  - Vomiting [Unknown]
